FAERS Safety Report 7468677-4 (Version None)
Quarter: 2011Q2

REPORT INFORMATION
  Report Type: 
  Country: None (occurrence: None)
  Receive Date: 20110510
  Receipt Date: 20061215
  Transmission Date: 20111010
  Serious: No
  Sender: FDA-Public Use
  Company Number: US-BIOGENIDEC-2006BI018753

PATIENT
  Age: 33 Year
  Sex: Female

DRUGS (2)
  1. TYSABRI [Suspect]
     Indication: MULTIPLE SCLEROSIS
     Route: 042
     Dates: start: 20060901
  2. TYSABRI [Suspect]
     Route: 042
     Dates: start: 20050127, end: 20050101

REACTIONS (3)
  - URTICARIA [None]
  - HYPERSENSITIVITY [None]
  - ASTHENIA [None]
